FAERS Safety Report 20694325 (Version 3)
Quarter: 2022Q2

REPORT INFORMATION
  Report Type: Spontaneous
  Country: BR (occurrence: BR)
  Receive Date: 20220411
  Receipt Date: 20220502
  Transmission Date: 20220720
  Serious: Yes (Death, Life-Threatening, Other)
  Sender: FDA-Public Use
  Company Number: BR-CELLTRION INC.-2022BR004371

PATIENT

DRUGS (3)
  1. TRUXIMA [Suspect]
     Active Substance: RITUXIMAB-ABBS
     Indication: Rheumatoid arthritis
     Dosage: 1000MG (TWO BOXES OF 500MG)
     Route: 042
     Dates: start: 20220216, end: 202203
  2. GLIFAGE [Concomitant]
     Active Substance: METFORMIN HYDROCHLORIDE
     Indication: Diabetes mellitus
     Dosage: 800MG (TWICE A DAY - MORNING AND EVENING; STARTED ABOUT 10 YEARS AGO
  3. ACETAMINOPHEN\CODEINE PHOSPHATE [Concomitant]
     Active Substance: ACETAMINOPHEN\CODEINE PHOSPHATE
     Indication: Pain in extremity
     Dosage: SPORADIC USE; IF NECESSARY

REACTIONS (4)
  - Cardiac arrest [Fatal]
  - Pneumonia [Fatal]
  - COVID-19 [Unknown]
  - Immunosuppression [Unknown]

NARRATIVE: CASE EVENT DATE: 20220326
